FAERS Safety Report 19757763 (Version 3)
Quarter: 2021Q3

REPORT INFORMATION
  Report Type: Report from Study
  Country: US (occurrence: US)
  Receive Date: 20210828
  Receipt Date: 20210922
  Transmission Date: 20211014
  Serious: No
  Sender: FDA-Public Use
  Company Number: NVSC2021US193616

PATIENT
  Sex: Female
  Weight: 77.1 kg

DRUGS (3)
  1. TREPROSTINIL. [Suspect]
     Active Substance: TREPROSTINIL
     Dosage: 89 NG/KG/MIN
     Route: 042
     Dates: start: 20210723
  2. OPSUMIT [Concomitant]
     Active Substance: MACITENTAN
     Indication: PRODUCT USED FOR UNKNOWN INDICATION
     Route: 065
  3. TREPROSTINIL. [Suspect]
     Active Substance: TREPROSTINIL
     Indication: PULMONARY ARTERIAL HYPERTENSION
     Dosage: 89 NG/KG/MIN
     Route: 042
     Dates: start: 20210723

REACTIONS (6)
  - Erythema [Unknown]
  - Pruritus [Unknown]
  - Swelling [Unknown]
  - Device connection issue [Unknown]
  - Arthropod sting [Unknown]
  - Injection site haemorrhage [Unknown]
